FAERS Safety Report 20133322 (Version 1)
Quarter: 2021Q4

REPORT INFORMATION
  Report Type: Spontaneous
  Country: US (occurrence: US)
  Receive Date: 20211201
  Receipt Date: 20211201
  Transmission Date: 20220303
  Serious: No
  Sender: FDA-Public Use
  Company Number: US-AMGEN-USASP2021188591

PATIENT
  Age: 63 Year
  Sex: Male

DRUGS (5)
  1. EPOETIN ALFA [Suspect]
     Active Substance: ERYTHROPOIETIN
     Indication: Haemolytic anaemia
     Dosage: 40000 UNIT, QWK
     Route: 058
  2. EPOETIN ALFA [Suspect]
     Active Substance: ERYTHROPOIETIN
     Indication: Off label use
  3. SOFOSBUVIR [Concomitant]
     Active Substance: SOFOSBUVIR
     Indication: Chronic hepatitis C
     Dosage: 400 MILLIGRAM, QD
  4. RIBAVIRIN [Concomitant]
     Active Substance: RIBAVIRIN
     Indication: Chronic hepatitis C
     Dosage: 200 MILLIGRAM, BID
  5. RIBAVIRIN [Concomitant]
     Active Substance: RIBAVIRIN
     Dosage: 200 MILLIGRAM, QD
     Route: 065

REACTIONS (1)
  - Off label use [Unknown]
